FAERS Safety Report 7620156-7 (Version None)
Quarter: 2011Q3

REPORT INFORMATION
  Report Type: 
  Country: None (occurrence: None)
  Receive Date: 20110719
  Receipt Date: 20110715
  Transmission Date: 20111222
  Serious: No
  Sender: FDA-Public Use
  Company Number: US-TEVA-290640USA

PATIENT
  Sex: Male
  Weight: 69.008 kg

DRUGS (4)
  1. AZILECT [Suspect]
     Indication: PARKINSON'S DISEASE
     Route: 048
     Dates: start: 20110708
  2. MESALAMINE [Concomitant]
  3. TAMSULOSIN HCL [Concomitant]
  4. SINEMET [Concomitant]
     Indication: PARKINSON'S DISEASE
     Dosage: 25/250 MG

REACTIONS (6)
  - VOMITING [None]
  - PRODUCTIVE COUGH [None]
  - DIARRHOEA [None]
  - NAUSEA [None]
  - DECREASED APPETITE [None]
  - TONGUE DISCOLOURATION [None]
